FAERS Safety Report 25128108 (Version 1)
Quarter: 2025Q1

REPORT INFORMATION
  Report Type: Spontaneous
  Country: FR (occurrence: FR)
  Receive Date: 20250327
  Receipt Date: 20250327
  Transmission Date: 20250409
  Serious: Yes (Other)
  Sender: AUROBINDO
  Company Number: FR-AFSSAPS-TO2025000392

PATIENT
  Age: 55 Year
  Sex: Male
  Weight: 68 kg

DRUGS (1)
  1. CIPROFLOXACIN [Suspect]
     Active Substance: CIPROFLOXACIN
     Indication: Urinary tract infection
     Dosage: 3 GRAM, ONCE A DAY
     Route: 048
     Dates: start: 20250205, end: 20250208

REACTIONS (3)
  - Oedema peripheral [Recovering/Resolving]
  - Pain [Recovering/Resolving]
  - Sensorimotor disorder [Recovering/Resolving]

NARRATIVE: CASE EVENT DATE: 20250206
